FAERS Safety Report 6712486-8 (Version None)
Quarter: 2010Q2

REPORT INFORMATION
  Report Type: 
  Country: None (occurrence: None)
  Receive Date: 20100506
  Receipt Date: 20100429
  Transmission Date: 20101027
  Serious: No
  Sender: FDA-Public Use
  Company Number: US-BIOGENIDEC-2010BI014786

PATIENT
  Age: 34 Year
  Sex: Female

DRUGS (2)
  1. AVONEX [Suspect]
     Indication: MULTIPLE SCLEROSIS
     Route: 030
     Dates: start: 20040427, end: 20070427
  2. AVONEX [Suspect]
     Route: 030
     Dates: start: 20080113, end: 20100301

REACTIONS (2)
  - DIARRHOEA [None]
  - PYREXIA [None]
